FAERS Safety Report 23792652 (Version 1)
Quarter: 2024Q2

REPORT INFORMATION
  Report Type: Report from Study
  Country: US (occurrence: US)
  Receive Date: 20240429
  Receipt Date: 20240429
  Transmission Date: 20240715
  Serious: Yes (Hospitalization, Other)
  Sender: FDA-Public Use
  Company Number: US-UCBSA-2024020100

PATIENT
  Sex: Female

DRUGS (1)
  1. CERTOLIZUMAB PEGOL [Suspect]
     Active Substance: CERTOLIZUMAB PEGOL
     Indication: Ankylosing spondylitis
     Dosage: LOADING DOSE 400 MILLIGRAM, EV 2 WEEKS(QOW) AT WEEK 0, 2, 4. MAINTENANCE DOSE 200 MG EVERY 2 WEEKS
     Route: 058
     Dates: start: 20240326

REACTIONS (5)
  - Viral sepsis [Recovering/Resolving]
  - Rhinovirus infection [Recovering/Resolving]
  - Ankylosing spondylitis [Not Recovered/Not Resolved]
  - Drug ineffective [Unknown]
  - Maternal exposure during pregnancy [Unknown]

NARRATIVE: CASE EVENT DATE: 20240101
